FAERS Safety Report 5405249-7 (Version None)
Quarter: 2007Q3

REPORT INFORMATION
  Report Type: 
  Country: None (occurrence: None)
  Receive Date: 20070803
  Receipt Date: 20070720
  Transmission Date: 20080115
  Serious: Yes (Death, Hospitalization)
  Sender: FDA-Public Use
  Company Number: AR-BAUSCH-2007BL002495

PATIENT
  Age: 40 Year
  Sex: Male

DRUGS (11)
  1. MINIMS DEXAMETHASONE SODIUM PHOSPHATE 0.1% [Suspect]
     Indication: HODGKIN'S DISEASE
  2. ADRIAMYCIN PFS [Suspect]
     Indication: HODGKIN'S DISEASE
  3. BLEOMYCIN [Suspect]
     Indication: HODGKIN'S DISEASE
  4. CISPLATIN [Suspect]
     Indication: HODGKIN'S DISEASE
  5. CYCLOPHOSPHAMIDE [Suspect]
     Indication: HODGKIN'S DISEASE
  6. CYTARABINE [Suspect]
     Indication: HODGKIN'S DISEASE
  7. ETOPOSIDE [Suspect]
     Indication: HODGKIN'S DISEASE
  8. METHOTREXATE [Suspect]
     Indication: HODGKIN'S DISEASE
  9. PREDNISONE TAB [Suspect]
     Indication: HODGKIN'S DISEASE
  10. PROCARBAZINE HYDROCHLORIDE [Suspect]
     Indication: HODGKIN'S DISEASE
  11. VINCRISTINE [Suspect]
     Indication: HODGKIN'S DISEASE

REACTIONS (9)
  - COORDINATION ABNORMAL [None]
  - CSF TEST ABNORMAL [None]
  - FEBRILE NEUTROPENIA [None]
  - GAIT DISTURBANCE [None]
  - HEADACHE [None]
  - MALIGNANT NEOPLASM PROGRESSION [None]
  - METASTASIS [None]
  - PARAESTHESIA [None]
  - PARAPARESIS [None]
